FAERS Safety Report 8784707 (Version 1)
Quarter: 2012Q4

REPORT INFORMATION
  Report Type: Spontaneous
  Country: IT (occurrence: None)
  Receive Date: 20120831
  Receipt Date: 20120831
  Transmission Date: 20130627
  Serious: Yes (Life-Threatening, Hospitalization, Other)
  Sender: FDA-Public Use
  Company Number: NSR_00652_2012

PATIENT
  Age: 75 Year
  Sex: Male

DRUGS (3)
  1. CLONIDINE HYDROCHLORIDE [Suspect]
     Indication: CONVULSION
  2. FENOBARBITAL [Suspect]
     Indication: CONVULSION
  3. FLUIDS [Concomitant]

REACTIONS (4)
  - Drug reaction with eosinophilia and systemic symptoms [None]
  - Pyrexia [None]
  - Hypotension [None]
  - Tachycardia [None]
